FAERS Safety Report 4762048-7 (Version None)
Quarter: 2005Q3

REPORT INFORMATION
  Report Type: 
  Country: None (occurrence: None)
  Receive Date: 20050831
  Receipt Date: 20050715
  Transmission Date: 20060218
  Serious: No
  Sender: FDA-Public Use
  Company Number: PHEH2005US07926

PATIENT
  Age: 80 Year
  Sex: Male

DRUGS (3)
  1. ENABLEX [Suspect]
     Indication: HYPERTONIC BLADDER
     Dosage: 15 MG, QD, ORAL
     Route: 048
     Dates: start: 20050711
  2. CARDURA [Concomitant]
  3. AMIODARONE HCL [Concomitant]

REACTIONS (3)
  - DRY MOUTH [None]
  - POLLAKIURIA [None]
  - THROAT IRRITATION [None]
